FAERS Safety Report 5273044-8 (Version None)
Quarter: 2007Q1

REPORT INFORMATION
  Report Type: 
  Country: None (occurrence: None)
  Receive Date: 20070322
  Receipt Date: 20070313
  Transmission Date: 20070707
  Serious: Yes (Hospitalization)
  Sender: FDA-Public Use
  Company Number: FR-PFIZER INC-2005029930

PATIENT
  Age: 58 Year
  Sex: Male

DRUGS (3)
  1. ANSATIPINE [Suspect]
     Indication: PULMONARY TUBERCULOSIS
     Dosage: TEXT:2 DOSES FORM
     Route: 048
     Dates: start: 20041231, end: 20061120
  2. ZECLAR [Suspect]
     Indication: PULMONARY TUBERCULOSIS
     Dosage: TEXT:3 DOSES FORM
     Route: 048
     Dates: start: 20041230, end: 20061120
  3. ETHAMBUTOL DIHYDROCHLORIDE [Suspect]
     Indication: PULMONARY TUBERCULOSIS
     Dosage: TEXT:2.5 DOSE FORM
     Route: 048
     Dates: start: 20040925, end: 20050104

REACTIONS (1)
  - OPTIC NEURITIS [None]
